FAERS Safety Report 15628136 (Version 1)
Quarter: 2018Q4

REPORT INFORMATION
  Report Type: Spontaneous
  Country: FR (occurrence: FR)
  Receive Date: 20181116
  Receipt Date: 20181116
  Transmission Date: 20190205
  Serious: Yes (Other)
  Sender: FDA-Public Use
  Company Number: FR-BRISTOL-MYERS SQUIBB COMPANY-BMS-2018-092166

PATIENT
  Sex: Female

DRUGS (1)
  1. KENACORT [Suspect]
     Active Substance: TRIAMCINOLONE
     Indication: BACK PAIN
     Dosage: 80 MG, UNK
     Route: 030
     Dates: start: 201803

REACTIONS (3)
  - Rash pruritic [Recovered/Resolved]
  - Polymenorrhoea [Unknown]
  - Hormone level abnormal [Not Recovered/Not Resolved]
